FAERS Safety Report 24804428 (Version 1)
Quarter: 2025Q1

REPORT INFORMATION
  Report Type: Spontaneous
  Country: NZ (occurrence: NZ)
  Receive Date: 20250103
  Receipt Date: 20250103
  Transmission Date: 20250409
  Serious: Yes (Hospitalization)
  Sender: AMERICAN REGENT
  Company Number: NZ-AMERICAN REGENT INC-2024004864

PATIENT
  Age: 82 Year
  Sex: Male

DRUGS (4)
  1. FERINJECT [Suspect]
     Active Substance: FERRIC CARBOXYMALTOSE
     Indication: Iron deficiency anaemia
  2. FERINJECT [Suspect]
     Active Substance: FERRIC CARBOXYMALTOSE
     Route: 042
     Dates: start: 20200630, end: 20200630
  3. ZOLEDRONIC ACID [Suspect]
     Active Substance: ZOLEDRONIC ACID
     Indication: Osteoporosis
     Route: 042
     Dates: start: 20200710, end: 20200710
  4. CHOLECALCIFEROL [Suspect]
     Active Substance: CHOLECALCIFEROL
     Indication: Osteoporosis
     Route: 042
     Dates: start: 20200708, end: 20200711

REACTIONS (4)
  - Drug interaction [Not Recovered/Not Resolved]
  - Hypocalcaemia [Not Recovered/Not Resolved]
  - Muscle spasms [Not Recovered/Not Resolved]
  - Hypophosphataemia [Not Recovered/Not Resolved]
